FAERS Safety Report 13098083 (Version 2)
Quarter: 2017Q1

REPORT INFORMATION
  Report Type: Spontaneous
  Country: US (occurrence: US)
  Receive Date: 20170109
  Receipt Date: 20170301
  Transmission Date: 20170428
  Serious: Yes (Hospitalization, Other)
  Sender: FDA-Public Use
  Company Number: US-LUNDBECK-DKLU2024787

PATIENT
  Age: 80 Year
  Sex: Male

DRUGS (4)
  1. NORTHERA [Suspect]
     Active Substance: DROXIDOPA
     Indication: PRODUCT USED FOR UNKNOWN INDICATION
     Dosage: TITRATION SCHEDULE B (TITRATING)
     Route: 065
     Dates: start: 20161116, end: 201612
  2. NORTHERA [Suspect]
     Active Substance: DROXIDOPA
     Route: 065
     Dates: end: 20161202
  3. NORTHERA [Suspect]
     Active Substance: DROXIDOPA
     Route: 065
  4. COUMADIN [Concomitant]
     Active Substance: WARFARIN SODIUM
     Indication: PRODUCT USED FOR UNKNOWN INDICATION
     Route: 065
     Dates: end: 2016

REACTIONS (3)
  - Parkinson^s disease [Unknown]
  - Transient ischaemic attack [Unknown]
  - Confusional state [Unknown]

NARRATIVE: CASE EVENT DATE: 20161212
